FAERS Safety Report 26175474 (Version 1)
Quarter: 2025Q4

REPORT INFORMATION
  Report Type: Spontaneous
  Country: US (occurrence: US)
  Receive Date: 20251218
  Receipt Date: 20251218
  Transmission Date: 20260118
  Serious: Yes (Hospitalization)
  Sender: FRESENIUS KABI
  Company Number: US-FreseniusKabi-FK202517472

PATIENT
  Age: 31 Year
  Sex: Female

DRUGS (4)
  1. KETAMINE [Suspect]
     Active Substance: KETAMINE
     Indication: Symptomatic treatment
     Dosage: INFUSION
  2. PROPOFOL [Concomitant]
     Active Substance: PROPOFOL
     Indication: Sedation
  3. FENTANYL [Concomitant]
     Active Substance: FENTANYL
     Indication: Sedation
  4. MIDAZOLAM [Concomitant]
     Active Substance: MIDAZOLAM
     Indication: Sedation

REACTIONS (1)
  - Increased bronchial secretion [Recovering/Resolving]
